FAERS Safety Report 14987589 (Version 1)
Quarter: 2018Q2

REPORT INFORMATION
  Report Type: Spontaneous
  Country: FR (occurrence: FR)
  Receive Date: 20180608
  Receipt Date: 20180608
  Transmission Date: 20180711
  Serious: Yes (Hospitalization)
  Sender: FDA-Public Use
  Company Number: PHHY2018FR017221

PATIENT
  Age: 57 Year
  Sex: Male
  Weight: 89 kg

DRUGS (2)
  1. OFLOCET [Suspect]
     Active Substance: OFLOXACIN
     Indication: ORCHITIS
     Dosage: 400 MG, QD
     Route: 048
     Dates: start: 20180208, end: 20180213
  2. CEFTRIAXONE. [Suspect]
     Active Substance: CEFTRIAXONE
     Indication: ORCHITIS
     Route: 042

REACTIONS (1)
  - Liver injury [Recovered/Resolved]

NARRATIVE: CASE EVENT DATE: 20180213
